FAERS Safety Report 18497052 (Version 7)
Quarter: 2022Q1

REPORT INFORMATION
  Report Type: Report from Study
  Country: CA (occurrence: CA)
  Receive Date: 20201112
  Receipt Date: 20220220
  Transmission Date: 20220423
  Serious: Yes (Hospitalization, Other)
  Sender: FDA-Public Use
  Company Number: PHHY2018CA046930

PATIENT
  Age: 83 Year
  Sex: Female

DRUGS (3)
  1. SANDOSTATIN LAR DEPOT [Suspect]
     Active Substance: OCTREOTIDE ACETATE
     Indication: Acromegaly
     Dosage: 20 MG, QMO (EVERY 4 WEEKS)
     Route: 030
     Dates: start: 20180614
  2. SANDOSTATIN LAR DEPOT [Suspect]
     Active Substance: OCTREOTIDE ACETATE
     Dosage: 20 MG, QMO (EVERY 4 WEEKS)
     Route: 030
     Dates: start: 20200124
  3. SANDOSTATIN LAR DEPOT [Suspect]
     Active Substance: OCTREOTIDE ACETATE

REACTIONS (13)
  - Cerebrovascular accident [Unknown]
  - Nephrolithiasis [Recovered/Resolved]
  - Pain [Unknown]
  - Blood pressure increased [Unknown]
  - Cerebral palsy [Recovered/Resolved]
  - Myocardial infarction [Recovered/Resolved]
  - Dyspnoea [Recovered/Resolved]
  - Pain in extremity [Recovered/Resolved]
  - Polyp [Unknown]
  - Mobility decreased [Unknown]
  - Intercepted product dispensing error [Unknown]
  - Malaise [Unknown]
  - Blood glucose decreased [Unknown]

NARRATIVE: CASE EVENT DATE: 20180712
